FAERS Safety Report 8332846-1 (Version None)
Quarter: 2012Q1

REPORT INFORMATION
  Report Type: 
  Country: None (occurrence: None)
  Receive Date: 20120315
  Receipt Date: 20110614
  Transmission Date: 20120608
  Serious: No
  Sender: FDA-Public Use
  Company Number: PHHY2011US48812

PATIENT
  Age: 49 Year
  Sex: Female

DRUGS (6)
  1. ROPINIROLE [Concomitant]
  2. FAMPRIDINE [Concomitant]
  3. ACETAMINOPHEN [Concomitant]
  4. GILENYA [Suspect]
     Indication: MULTIPLE SCLEROSIS
     Dosage: 0.5 MG, QD, ORAL
     Route: 048
     Dates: start: 20110526, end: 20110603
  5. CELEBREX [Concomitant]
  6. SERTRALINE HYDROCHLORIDE [Concomitant]

REACTIONS (9)
  - GAIT DISTURBANCE [None]
  - HOT FLUSH [None]
  - MUSCLE DISORDER [None]
  - ASTHENIA [None]
  - EAR DISCOMFORT [None]
  - TREMOR [None]
  - HEADACHE [None]
  - FEELING COLD [None]
  - LIMB DISCOMFORT [None]
